FAERS Safety Report 9411406 (Version 1)
Quarter: 2013Q3

REPORT INFORMATION
  Report Type: Spontaneous
  Country: GB (occurrence: GB)
  Receive Date: 20130722
  Receipt Date: 20130722
  Transmission Date: 20140515
  Serious: Yes (Other)
  Sender: FDA-Public Use
  Company Number: GB-009507513-1307GBR010618

PATIENT
  Age: 75 Year
  Sex: Female
  Weight: 77 kg

DRUGS (9)
  1. FOSAMAX [Suspect]
     Dosage: UNK
     Route: 048
     Dates: start: 20130703
  2. ALENDRONIC ACID [Suspect]
     Dosage: UNK
     Dates: start: 20130703
  3. ADCAL (CALCIUM CARBONATE) [Concomitant]
     Dosage: UNK
     Dates: start: 20130624
  4. BENDROFLUMETHIAZIDE [Concomitant]
     Dosage: UNK
     Dates: start: 20130402
  5. CODEINE PHOSPHATE [Concomitant]
     Dosage: UNK
     Dates: start: 20130703
  6. NITROFURANTOIN [Concomitant]
     Dosage: UNK
     Dates: start: 20130219
  7. OMEPRAZOLE [Concomitant]
     Dosage: UNK
     Dates: start: 20130524
  8. PARACETAMOL [Concomitant]
     Dosage: UNK
     Dates: start: 20130703
  9. PREDNISOLONE [Concomitant]
     Dosage: UNK
     Dates: start: 20130411

REACTIONS (2)
  - Condition aggravated [Unknown]
  - Lung disorder [Unknown]
